FAERS Safety Report 17452205 (Version 1)
Quarter: 2020Q1

REPORT INFORMATION
  Report Type: Spontaneous
  Country: FR (occurrence: FR)
  Receive Date: 20200224
  Receipt Date: 20200224
  Transmission Date: 20200409
  Serious: Yes (Other)
  Sender: FDA-Public Use
  Company Number: FR-US-PROVELL PHARMACEUTICALS LLC-E2B_90075023

PATIENT
  Age: 32 Year
  Sex: Female
  Weight: 65 kg

DRUGS (1)
  1. LEVOTHYROX 75 [Suspect]
     Active Substance: LEVOTHYROXINE
     Indication: AUTOIMMUNE THYROIDITIS
     Route: 048
     Dates: start: 20190718, end: 20191118

REACTIONS (4)
  - Arrhythmia [Not Recovered/Not Resolved]
  - Palpitations [Not Recovered/Not Resolved]
  - Asthenia [Not Recovered/Not Resolved]
  - Hot flush [Not Recovered/Not Resolved]

NARRATIVE: CASE EVENT DATE: 20191108
